FAERS Safety Report 9432449 (Version 2)
Quarter: 2013Q3

REPORT INFORMATION
  Report Type: Spontaneous
  Country: CH (occurrence: CH)
  Receive Date: 20130731
  Receipt Date: 20130821
  Transmission Date: 20140515
  Serious: Yes (Other)
  Sender: FDA-Public Use
  Company Number: CH-JNJFOC-20130711590

PATIENT
  Age: 23 Year
  Sex: Male
  Weight: 60 kg

DRUGS (2)
  1. CONCERTA [Suspect]
     Indication: PRODUCT USED FOR UNKNOWN INDICATION
     Dosage: 1/8 OF THE 54 MG TABLET
     Route: 048
     Dates: start: 20130517, end: 20130518
  2. CONCERTA [Suspect]
     Indication: PRODUCT USED FOR UNKNOWN INDICATION
     Dosage: 1/4 OF THE 54 MG TABLET
     Route: 048
     Dates: start: 20130519

REACTIONS (5)
  - Hyperventilation [Unknown]
  - Chest discomfort [Unknown]
  - Dizziness [Unknown]
  - Incorrect drug dosage form administered [Unknown]
  - Formication [Unknown]
